FAERS Safety Report 6364538-2 (Version None)
Quarter: 2009Q3

REPORT INFORMATION
  Report Type: 
  Country: None (occurrence: None)
  Receive Date: 20090919
  Receipt Date: 20090820
  Transmission Date: 20100115
  Serious: No
  Sender: FDA-Public Use
  Company Number: US-ABBOTT-09P-163-0587821-00

PATIENT
  Sex: Female
  Weight: 86.26 kg

DRUGS (3)
  1. HUMIRA [Suspect]
     Indication: PSORIASIS
     Dates: start: 20090806
  2. HUMIRA [Suspect]
     Dates: start: 20090723, end: 20090723
  3. HUMIRA [Suspect]
     Dosage: 80MG LOADING DOSE
     Dates: start: 20090716, end: 20090716

REACTIONS (1)
  - NAUSEA [None]
